FAERS Safety Report 9707409 (Version 2)
Quarter: 2013Q4

REPORT INFORMATION
  Report Type: Spontaneous
  Country: ES (occurrence: None)
  Receive Date: 20131121
  Receipt Date: 20131209
  Transmission Date: 20140711
  Serious: Yes (Hospitalization)
  Sender: FDA-Public Use
  Company Number: SYM-2013-12980

PATIENT
  Age: 65 Year
  Sex: Female

DRUGS (5)
  1. 5-FU [Suspect]
     Indication: COLORECTAL CANCER METASTATIC
     Route: 040
     Dates: start: 20130729, end: 20130729
  2. IRINOTECAN (IRINOTECAN) (SOLUTION FOR INFUSION) (IRINOTECAN) [Suspect]
     Indication: NEOPLASM MALIGNANT
     Route: 041
     Dates: start: 20130729, end: 20130729
  3. IRINOTECAN (IRINOTECAN) (SOLUTION FOR INFUSION) (IRINOTECAN) [Suspect]
     Indication: METASTASIS
     Route: 041
     Dates: start: 20130729, end: 20130729
  4. LEUCOVORIN (FOLINIC ACID) (SOLUTION FOR INFUSION) (FOLINIC ACID) [Suspect]
     Indication: COLORECTAL CANCER METASTATIC
     Route: 041
     Dates: start: 20130729, end: 20130729
  5. AFLIBERCEPT (AFLIBERCEPT) (SOLUTION FOR INFUSION) (AFLIBERCEPT) [Suspect]
     Indication: COLORECTAL CANCER METASTATIC
     Route: 041
     Dates: start: 20130729, end: 20130729

REACTIONS (2)
  - Mucosal inflammation [None]
  - Diarrhoea [None]
